FAERS Safety Report 9929254 (Version 1)
Quarter: 2014Q1

REPORT INFORMATION
  Report Type: Spontaneous
  Country: CA (occurrence: CA)
  Receive Date: 20140227
  Receipt Date: 20140227
  Transmission Date: 20141002
  Serious: Yes (Life-Threatening, Hospitalization, Other)
  Sender: FDA-Public Use
  Company Number: CA-TEVA-465261USA

PATIENT
  Age: 63 Year
  Sex: Female
  Weight: 87 kg

DRUGS (6)
  1. HYDROCHLOROTHIAZIDE [Suspect]
     Dosage: 25 MILLIGRAM DAILY;
     Route: 048
  2. IRBESARTAN [Suspect]
     Dosage: 150 MILLIGRAM DAILY;
     Route: 048
  3. AMLODIPINE [Concomitant]
  4. CAPTOPRIL [Concomitant]
  5. LIPIDIL EZ [Concomitant]
  6. SYNTHROID [Concomitant]

REACTIONS (3)
  - Blood creatinine increased [Recovered/Resolved]
  - Renal artery stenosis [Recovered/Resolved]
  - Renal impairment [Recovered/Resolved]
